FAERS Safety Report 14231909 (Version 1)
Quarter: 2017Q4

REPORT INFORMATION
  Report Type: Spontaneous
  Country: DE (occurrence: DE)
  Receive Date: 20171128
  Receipt Date: 20171128
  Transmission Date: 20180321
  Serious: Yes (Life-Threatening, Hospitalization, Other)
  Sender: FDA-Public Use
  Company Number: DE-VIRTUS PHARMACEUTICALS, LLC-2017VTS00663

PATIENT
  Age: 74 Year

DRUGS (3)
  1. ROPIVACAINE [Concomitant]
     Active Substance: ROPIVACAINE
     Indication: ABDOMINAL PAIN
  2. ROPIVACAINE [Concomitant]
     Active Substance: ROPIVACAINE
     Indication: BACK PAIN
     Dosage: 0.2% AT 4 ML/H
     Route: 008
  3. POTASSIUM CHLORIDE. [Suspect]
     Active Substance: POTASSIUM CHLORIDE
     Indication: HYPOKALAEMIA
     Dosage: 800 MG, ONCE (12 ML; 7.45% WITH FLOW RATE OF 10 ML/H)
     Route: 008

REACTIONS (6)
  - Acute myocardial infarction [Recovered/Resolved]
  - Respiratory depression [Recovered/Resolved]
  - Loss of consciousness [Recovered/Resolved]
  - Pneumonia [Recovering/Resolving]
  - Drug administered at inappropriate site [Recovered/Resolved]
  - Spinal cord paralysis [Recovered/Resolved]
